FAERS Safety Report 9162265 (Version 1)
Quarter: 2013Q1

REPORT INFORMATION
  Report Type: Spontaneous
  Country: US (occurrence: None)
  Receive Date: 20130222
  Receipt Date: 20130222
  Transmission Date: 20140127
  Serious: Yes (Other)
  Sender: FDA-Public Use
  Company Number: ACO_24533_2010

PATIENT
  Age: 70 Year
  Sex: Female
  Weight: 73 kg

DRUGS (9)
  1. AMPYRA [Suspect]
     Indication: MULTIPLE SCLEROSIS
     Route: 048
     Dates: start: 20100714, end: 20100728
  2. LEVOTHYROXINE (LEVOTHYROXINE) [Concomitant]
  3. VITAMIN D (VITAMIN D NOS) [Concomitant]
  4. FOLIC ACID (FOLIC ACID) [Concomitant]
  5. COPAXONE (GLATIRAMER ACETATE) [Concomitant]
  6. ZOCOR (SIMVASTATIN) [Concomitant]
  7. METHOTREXATE (METHOTREXATE) [Concomitant]
  8. TAMOXIFEN [Concomitant]
  9. UNSPECIFIED MEDICATION FOR THE PREVENTION OF CANCER [Concomitant]

REACTIONS (20)
  - Convulsion [None]
  - Local swelling [None]
  - Fall [None]
  - Condition aggravated [None]
  - Rash pruritic [None]
  - Rash [None]
  - Rash [None]
  - Urinary tract infection [None]
  - Myalgia [None]
  - Back pain [None]
  - Pollakiuria [None]
  - Musculoskeletal stiffness [None]
  - Gait disturbance [None]
  - Dizziness [None]
  - Visual impairment [None]
  - Vision blurred [None]
  - Head injury [None]
  - Feeling abnormal [None]
  - Joint dislocation [None]
  - Cystitis [None]
